FAERS Safety Report 23453285 (Version 1)
Quarter: 2024Q1

REPORT INFORMATION
  Report Type: Spontaneous
  Country: CN (occurrence: CN)
  Receive Date: 20240129
  Receipt Date: 20240129
  Transmission Date: 20240410
  Serious: Yes (Life-Threatening, Hospitalization, Other)
  Sender: FDA-Public Use
  Company Number: CN-009507513-2401CHN014898

PATIENT
  Age: 75 Year
  Sex: Male

DRUGS (6)
  1. KEYTRUDA [Suspect]
     Active Substance: PEMBROLIZUMAB
     Indication: Lung neoplasm malignant
     Dosage: UNK
     Dates: start: 2023
  2. KEYTRUDA [Suspect]
     Active Substance: PEMBROLIZUMAB
     Dosage: UNK
     Dates: start: 20231027
  3. KEYTRUDA [Suspect]
     Active Substance: PEMBROLIZUMAB
     Dosage: UNK
     Dates: start: 20231122
  4. KEYTRUDA [Suspect]
     Active Substance: PEMBROLIZUMAB
     Dosage: 200MG
     Dates: start: 20231217, end: 20231217
  5. PACLITAXEL [Concomitant]
     Active Substance: PACLITAXEL
     Indication: Lung neoplasm malignant
     Dosage: 210MG
     Route: 041
     Dates: start: 20231217, end: 20231217
  6. BEVACIZUMAB [Concomitant]
     Active Substance: BEVACIZUMAB
     Indication: Lung neoplasm malignant
     Dosage: 400MG
     Route: 041
     Dates: start: 20231217, end: 20231217

REACTIONS (14)
  - Immune-mediated lung disease [Recovering/Resolving]
  - Immune-mediated myocarditis [Recovering/Resolving]
  - Immune-mediated nephritis [Recovering/Resolving]
  - Diabetic ketoacidosis [Unknown]
  - Type 2 diabetes mellitus [Unknown]
  - Thyroid disorder [Recovering/Resolving]
  - Immune-mediated pancreatitis [Unknown]
  - Pneumonia [Unknown]
  - Hyperkalaemia [Unknown]
  - Gout [Unknown]
  - Cholelithiasis [Unknown]
  - Product use issue [Unknown]
  - Inappropriate schedule of product administration [Unknown]
  - Inappropriate schedule of product administration [Unknown]

NARRATIVE: CASE EVENT DATE: 20231122
